FAERS Safety Report 25536014 (Version 1)
Quarter: 2025Q3

REPORT INFORMATION
  Report Type: Spontaneous
  Country: US (occurrence: None)
  Receive Date: 20250709
  Receipt Date: 20250709
  Transmission Date: 20251020
  Serious: Yes (Other)
  Sender: FDA-CTU
  Company Number: None

PATIENT
  Age: 75 Year
  Sex: Female

DRUGS (2)
  1. IRINOTECAN [Suspect]
     Active Substance: IRINOTECAN
     Indication: Colorectal cancer
  2. CAMPTOSAR [Suspect]
     Active Substance: IRINOTECAN HYDROCHLORIDE

REACTIONS (6)
  - Infusion related reaction [None]
  - Paraesthesia oral [None]
  - Muscle twitching [None]
  - Nausea [None]
  - Hypertension [None]
  - Fatigue [None]

NARRATIVE: CASE EVENT DATE: 20250708
